FAERS Safety Report 5453829-5 (Version None)
Quarter: 2007Q3

REPORT INFORMATION
  Report Type: 
  Country: None (occurrence: None)
  Receive Date: 20070917
  Receipt Date: 20070912
  Transmission Date: 20080115
  Serious: Yes (Hospitalization, Disabling, Other)
  Sender: FDA-Public Use
  Company Number: A0681458A

PATIENT
  Age: 59 Year
  Sex: Female

DRUGS (5)
  1. TYKERB [Suspect]
     Indication: BREAST CANCER
     Dosage: 1250MG PER DAY
     Route: 048
     Dates: start: 20070909
  2. XELODA [Concomitant]
  3. DECADRON [Concomitant]
  4. ZYRTEC [Concomitant]
  5. HYZAAR [Concomitant]

REACTIONS (5)
  - ASTHENIA [None]
  - HYPOCALCAEMIA [None]
  - HYPOKALAEMIA [None]
  - HYPOPHOSPHATAEMIA [None]
  - MUSCULAR WEAKNESS [None]
